FAERS Safety Report 12073421 (Version 2)
Quarter: 2016Q1

REPORT INFORMATION
  Report Type: Spontaneous
  Country: FR (occurrence: FR)
  Receive Date: 20160212
  Receipt Date: 20160229
  Transmission Date: 20160526
  Serious: Yes (Death, Life-Threatening, Hospitalization)
  Sender: FDA-Public Use
  Company Number: FR-JNJFOC-20160206824

PATIENT
  Age: 55 Year
  Sex: Male

DRUGS (11)
  1. ISENTRESS [Suspect]
     Active Substance: RALTEGRAVIR POTASSIUM
     Indication: HIV TEST POSITIVE
     Dosage: 1-0-1
     Route: 048
     Dates: start: 20150824, end: 20151128
  2. SERESTA [Suspect]
     Active Substance: OXAZEPAM
     Indication: PRODUCT USED FOR UNKNOWN INDICATION
     Route: 048
  3. OXYCODONE [Suspect]
     Active Substance: OXYCODONE
     Indication: PAIN
     Dosage: 10ML LI (SB/4H)
     Route: 048
  4. ALDACTONE [Suspect]
     Active Substance: SPIRONOLACTONE
     Indication: PRODUCT USED FOR UNKNOWN INDICATION
     Route: 048
  5. INTELENCE [Suspect]
     Active Substance: ETRAVIRINE
     Indication: HIV TEST POSITIVE
     Dosage: 200MG 0-2-0
     Route: 048
     Dates: start: 201503, end: 20151128
  6. PREZISTA [Suspect]
     Active Substance: DARUNAVIR ETHANOLATE
     Indication: HIV TEST POSITIVE
     Dosage: 1-0-1
     Route: 048
     Dates: start: 20150824, end: 20151128
  7. RIBAVIRIN. [Suspect]
     Active Substance: RIBAVIRIN
     Indication: HEPATITIS C
     Dosage: 2-0-3
     Route: 048
     Dates: start: 20150824, end: 20151126
  8. SOVALDI [Suspect]
     Active Substance: SOFOSBUVIR
     Indication: CHRONIC HEPATITIS C
     Dosage: 1-0-0
     Route: 048
     Dates: start: 20150824, end: 20151203
  9. NORVIR [Suspect]
     Active Substance: RITONAVIR
     Indication: HIV TEST POSITIVE
     Dosage: 1-0-1
     Route: 048
     Dates: start: 20150824, end: 20151128
  10. FENTANYL. [Suspect]
     Active Substance: FENTANYL
     Indication: PAIN
     Dosage: 75UG 1 PATCH EVERY 3 DAYS
     Route: 062
  11. DAKLINZA [Suspect]
     Active Substance: DACLATASVIR
     Indication: CHRONIC HEPATITIS C
     Dosage: 1-0-0
     Route: 048
     Dates: start: 20150824, end: 20151203

REACTIONS (1)
  - Hepatorenal syndrome [Fatal]

NARRATIVE: CASE EVENT DATE: 20151128
